FAERS Safety Report 18437438 (Version 2)
Quarter: 2020Q4

REPORT INFORMATION
  Report Type: Spontaneous
  Country: US (occurrence: US)
  Receive Date: 20201028
  Receipt Date: 20201028
  Transmission Date: 20210114
  Serious: Yes (Hospitalization)
  Sender: FDA-Public Use
  Company Number: US-B.I. PHARMACEUTICALS,INC./RIDGEFIELD-2020-BI-056726

PATIENT
  Age: 39 Year
  Sex: Male

DRUGS (1)
  1. OFEV [Suspect]
     Active Substance: NINTEDANIB
     Indication: PRODUCT USED FOR UNKNOWN INDICATION
     Route: 065

REACTIONS (8)
  - Pain in extremity [Unknown]
  - Fine motor skill dysfunction [Unknown]
  - Hypoaesthesia [Unknown]
  - Paraesthesia [Unknown]
  - Back pain [Unknown]
  - Diarrhoea [Recovered/Resolved]
  - Muscular weakness [Unknown]
  - Fatigue [Unknown]
